FAERS Safety Report 6531933-8 (Version None)
Quarter: 2010Q1

REPORT INFORMATION
  Report Type: 
  Country: None (occurrence: None)
  Receive Date: 20100107
  Receipt Date: 20100107
  Transmission Date: 20100710
  Serious: No
  Sender: FDA-Public Use
  Company Number: None

PATIENT
  Age: 28 Year
  Sex: Female
  Weight: 52.1637 kg

DRUGS (2)
  1. PAROXETINE HCL [Suspect]
  2. PAROXETINE HCL [Concomitant]

REACTIONS (2)
  - LOSS OF LIBIDO [None]
  - SEXUAL DYSFUNCTION [None]
